FAERS Safety Report 6478216-2 (Version None)
Quarter: 2009Q4

REPORT INFORMATION
  Report Type: 
  Country: None (occurrence: None)
  Receive Date: 20091202
  Receipt Date: 20091120
  Transmission Date: 20100525
  Serious: Yes (Hospitalization)
  Sender: FDA-Public Use
  Company Number: 2009-4865

PATIENT
  Age: 75 Year
  Sex: Female

DRUGS (3)
  1. APO-GO AMPOULES (APO-GO) (APOMORPHINE HYDROCHLORIDE) (APOMORPHINE HYDR [Suspect]
     Indication: PARKINSON'S DISEASE
     Dosage: 7 MG PER HOUR, SUBCUTANEOUS, 17 MG PER HOUR, SUBCUTANEOUS
     Route: 058
     Dates: start: 20080725
  2. APO-GO AMPOULES (APO-GO) (APOMORPHINE HYDROCHLORIDE) (APOMORPHINE HYDR [Suspect]
     Indication: PARKINSON'S DISEASE
     Dosage: 7 MG PER HOUR, SUBCUTANEOUS, 17 MG PER HOUR, SUBCUTANEOUS
     Route: 058
     Dates: start: 20090827
  3. SEROQUEL 25 (QUETIAPINE) [Concomitant]

REACTIONS (2)
  - RED BLOOD CELL COUNT DECREASED [None]
  - WHITE BLOOD CELL COUNT DECREASED [None]
